FAERS Safety Report 5250850-7 (Version None)
Quarter: 2007Q1

REPORT INFORMATION
  Report Type: 
  Country: None (occurrence: None)
  Receive Date: 20070228
  Receipt Date: 20060908
  Transmission Date: 20070707
  Serious: No
  Sender: FDA-Public Use
  Company Number: US-GLAXOSMITHKLINE-A0612653A

PATIENT
  Age: 22 Year
  Sex: Female
  Weight: 63.6 kg

DRUGS (3)
  1. LAMICTAL [Suspect]
     Indication: AFFECTIVE DISORDER
     Dosage: 200MG UNKNOWN
     Route: 048
  2. WELLBUTRIN [Concomitant]
     Dosage: 150MG TWICE PER DAY
     Route: 048
  3. ADDERALL 10 [Concomitant]
     Dosage: 10MG PER DAY
     Route: 048

REACTIONS (2)
  - COORDINATION ABNORMAL [None]
  - DYSARTHRIA [None]
